FAERS Safety Report 4681543-2 (Version None)
Quarter: 2005Q2

REPORT INFORMATION
  Report Type: 
  Country: None (occurrence: None)
  Receive Date: 20050603
  Receipt Date: 20050519
  Transmission Date: 20051028
  Serious: Yes (Other)
  Sender: FDA-Public Use
  Company Number: US-GLAXOSMITHKLINE-A0559271A

PATIENT
  Age: 94 Year
  Sex: Female
  Weight: 50 kg

DRUGS (4)
  1. CITRUCEL CAPLETS [Suspect]
     Indication: IRRITABLE BOWEL SYNDROME
     Route: 048
     Dates: start: 20020101
  2. CARDIAZEM [Concomitant]
     Indication: MITRAL VALVE PROLAPSE
     Dosage: 30MG PER DAY
     Route: 048
  3. CITRACAL [Concomitant]
     Route: 048
  4. MULTIVITAMIN [Concomitant]
     Indication: VITAMIN SUPPLEMENTATION
     Route: 048

REACTIONS (2)
  - FAECAL INCONTINENCE [None]
  - WEIGHT DECREASED [None]
